FAERS Safety Report 12627564 (Version 4)
Quarter: 2017Q4

REPORT INFORMATION
  Report Type: Spontaneous
  Country: JP (occurrence: JP)
  Receive Date: 20160805
  Receipt Date: 20171213
  Transmission Date: 20180320
  Serious: Yes (Hospitalization, Disabling)
  Sender: FDA-Public Use
  Company Number: JP-B.I. PHARMACEUTICALS,INC./RIDGEFIELD-2016-BI-49787NB

PATIENT
  Age: 85 Year
  Sex: Male

DRUGS (3)
  1. ACETATED RINGER^S SOLUTION [Concomitant]
     Indication: DIABETES MELLITUS
     Route: 065
     Dates: start: 2015
  2. TRAZENTA [Suspect]
     Active Substance: LINAGLIPTIN
     Indication: DIABETES MELLITUS
     Route: 065
     Dates: start: 2015
  3. NATEGLINIDE. [Concomitant]
     Active Substance: NATEGLINIDE
     Indication: DIABETES MELLITUS
     Route: 065
     Dates: start: 2015

REACTIONS (2)
  - Chorea [Recovered/Resolved with Sequelae]
  - Ballismus [Recovered/Resolved with Sequelae]

NARRATIVE: CASE EVENT DATE: 201506
